FAERS Safety Report 14603754 (Version 2)
Quarter: 2018Q1

REPORT INFORMATION
  Report Type: Other
  Country: BE (occurrence: BE)
  Receive Date: 20180306
  Receipt Date: 20180330
  Transmission Date: 20180509
  Serious: Yes (Life-Threatening, Hospitalization, Other)
  Sender: FDA-Public Use
  Company Number: BE-ASPEN-GLO2018BE001844

PATIENT
  Age: 36 Year
  Sex: Female
  Weight: 70 kg

DRUGS (9)
  1. PLASMALYTE [Suspect]
     Active Substance: ELECTROLYTES NOS
     Dosage: 1 DF, SINGLE
     Route: 042
  2. ROCURONIUM [Suspect]
     Active Substance: ROCURONIUM BROMIDE
     Dosage: 40 MG, SINGLE
     Route: 042
  3. SUFENTA [Suspect]
     Active Substance: SUFENTANIL CITRATE
     Indication: INDUCTION OF ANAESTHESIA
     Dosage: 10 ?G, SINGLE
     Route: 042
  4. PROPOLIPID [Suspect]
     Active Substance: PROPOFOL
     Indication: INDUCTION OF ANAESTHESIA
     Dosage: 200 MG, SINGLE
     Route: 042
  5. ROCURONIUM [Suspect]
     Active Substance: ROCURONIUM BROMIDE
     Indication: INDUCTION OF ANAESTHESIA
     Dosage: 40 MG, SINGLE
     Route: 042
  6. DEHYDROBENZPERIDOL [Suspect]
     Active Substance: DROPERIDOL
     Indication: INDUCTION OF ANAESTHESIA
     Dosage: 1.25 MG, SINGLE
     Route: 042
  7. AACIDEXAM [Suspect]
     Active Substance: DEXAMETHASONE
     Indication: INDUCTION OF ANAESTHESIA
     Dosage: 5 MG, SINGLE
     Route: 042
  8. VOLTAREN [Suspect]
     Active Substance: DICLOFENAC SODIUM
     Indication: INDUCTION OF ANAESTHESIA
     Dosage: 75 MG, SINGLE
     Route: 042
  9. PLASMALYTE [Suspect]
     Active Substance: ELECTROLYTES NOS
     Indication: INDUCTION OF ANAESTHESIA
     Dosage: 1 DF, SINGLE
     Route: 042

REACTIONS (2)
  - Off label use [Unknown]
  - Anaphylactic shock [Recovered/Resolved]

NARRATIVE: CASE EVENT DATE: 20180115
